FAERS Safety Report 4318793-0 (Version None)
Quarter: 2004Q1

REPORT INFORMATION
  Report Type: 
  Country: None (occurrence: None)
  Receive Date: 20040318
  Receipt Date: 20040226
  Transmission Date: 20041129
  Serious: Yes (Life-Threatening, Hospitalization)
  Sender: FDA-Public Use
  Company Number: FR-GLAXOSMITHKLINE-B0324749A

PATIENT
  Age: 44 Year
  Sex: Male
  Weight: 86 kg

DRUGS (2)
  1. ZINNAT [Suspect]
     Indication: SINUSITIS
     Dosage: 250MG PER DAY
     Route: 048
     Dates: start: 20040210, end: 20040210
  2. LODOZ [Concomitant]
     Indication: HYPERTENSION
     Dosage: 8MG PER DAY
     Route: 048
     Dates: start: 20030201, end: 20040210

REACTIONS (1)
  - ANAPHYLACTIC SHOCK [None]
